FAERS Safety Report 11957160 (Version 3)
Quarter: 2016Q2

REPORT INFORMATION
  Report Type: Spontaneous
  Country: ES (occurrence: ES)
  Receive Date: 20160126
  Receipt Date: 20160525
  Transmission Date: 20160815
  Serious: Yes (Other)
  Sender: FDA-Public Use
  Company Number: ES-LUNDBECK-DKLU2009228

PATIENT
  Age: 7 Year
  Sex: Female

DRUGS (7)
  1. NOIAFREN [Suspect]
     Active Substance: CLOBAZAM
     Indication: PRODUCT USED FOR UNKNOWN INDICATION
     Route: 065
     Dates: start: 20150212, end: 201505
  2. NOIAFREN [Suspect]
     Active Substance: CLOBAZAM
     Route: 065
     Dates: start: 20151127
  3. DEPAKINE [Concomitant]
     Active Substance: VALPROATE SODIUM
     Indication: PRODUCT USED FOR UNKNOWN INDICATION
     Route: 065
  4. NOIAFREN [Suspect]
     Active Substance: CLOBAZAM
     Route: 065
     Dates: start: 20151117
  5. ALVANSE [Concomitant]
     Indication: PRODUCT USED FOR UNKNOWN INDICATION
     Route: 065
  6. NOIAFREN [Suspect]
     Active Substance: CLOBAZAM
     Route: 065
     Dates: start: 20150622
  7. NOIAFREN [Suspect]
     Active Substance: CLOBAZAM
     Route: 065
     Dates: start: 20151207, end: 20151216

REACTIONS (17)
  - Autism spectrum disorder [Unknown]
  - Communication disorder [Not Recovered/Not Resolved]
  - Memory impairment [Not Recovered/Not Resolved]
  - Diarrhoea [Unknown]
  - Disturbance in attention [Not Recovered/Not Resolved]
  - Dry mouth [Not Recovered/Not Resolved]
  - Poor quality sleep [Not Recovered/Not Resolved]
  - Aggression [Recovered/Resolved]
  - Mood altered [Not Recovered/Not Resolved]
  - Eye movement disorder [Recovered/Resolved]
  - Conduct disorder [Not Recovered/Not Resolved]
  - Screaming [Not Recovered/Not Resolved]
  - Crying [Not Recovered/Not Resolved]
  - Constipation [Not Recovered/Not Resolved]
  - Bite [Not Recovered/Not Resolved]
  - Cognitive disorder [Not Recovered/Not Resolved]
  - Nervousness [Not Recovered/Not Resolved]

NARRATIVE: CASE EVENT DATE: 201508
